FAERS Safety Report 12499403 (Version 3)
Quarter: 2016Q3

REPORT INFORMATION
  Report Type: Spontaneous
  Country: BR (occurrence: BR)
  Receive Date: 20160627
  Receipt Date: 20160705
  Transmission Date: 20161109
  Serious: Yes (Other)
  Sender: FDA-Public Use
  Company Number: BR-ABBVIE-16P-020-1660723-00

PATIENT
  Age: 30 Year
  Sex: Female
  Weight: 66 kg

DRUGS (5)
  1. DEPAKOTE ER [Suspect]
     Active Substance: DIVALPROEX SODIUM
     Indication: SEIZURE
     Dosage: NIGHT
     Route: 048
     Dates: start: 20160217, end: 201606
  2. DEPAKENE [Suspect]
     Active Substance: VALPROIC ACID
     Indication: SEIZURE
     Route: 048
     Dates: end: 2013
  3. LAMOTRIGINE. [Concomitant]
     Active Substance: LAMOTRIGINE
     Indication: PRODUCT USED FOR UNKNOWN INDICATION
     Dates: start: 2015, end: 2016
  4. DEPAKOTE ER [Suspect]
     Active Substance: DIVALPROEX SODIUM
     Dosage: MORNING
     Route: 048
     Dates: start: 20160604
  5. LAMITOR [Concomitant]
     Active Substance: LAMOTRIGINE
     Indication: PRODUCT USED FOR UNKNOWN INDICATION
     Dates: start: 2015, end: 2016

REACTIONS (15)
  - Fatigue [Unknown]
  - Product size issue [Unknown]
  - Swelling [Not Recovered/Not Resolved]
  - Weight increased [Not Recovered/Not Resolved]
  - Swelling [Unknown]
  - Poor quality sleep [Recovered/Resolved]
  - Asthenia [Not Recovered/Not Resolved]
  - Drug dose omission [Unknown]
  - Pollakiuria [Not Recovered/Not Resolved]
  - Therapy cessation [Unknown]
  - Fall [Not Recovered/Not Resolved]
  - Wrong technique in product usage process [Unknown]
  - Increased appetite [Not Recovered/Not Resolved]
  - Loss of libido [Unknown]
  - Weight increased [Unknown]

NARRATIVE: CASE EVENT DATE: 2013
